FAERS Safety Report 9384376 (Version 4)
Quarter: 2014Q2

REPORT INFORMATION
  Report Type: Spontaneous
  Country: GB (occurrence: GB)
  Receive Date: 20130705
  Receipt Date: 20140602
  Transmission Date: 20141212
  Serious: Yes (Hospitalization, Other)
  Sender: FDA-Public Use
  Company Number: PHFR2013GB003771

PATIENT
  Age: 49 Year
  Sex: Male

DRUGS (4)
  1. CLOZARIL [Suspect]
     Indication: SCHIZOPHRENIA
     Dosage: UNK
     Route: 048
     Dates: start: 20010701
  2. CLOZARIL [Suspect]
     Dosage: 400 MG, UNK
     Route: 048
  3. CLOZARIL [Suspect]
     Dosage: 300 MG, UNK
     Route: 048
  4. CLOZARIL [Suspect]
     Dosage: 312.5 MG, UNK

REACTIONS (11)
  - Nephrolithiasis [Recovered/Resolved]
  - Infection [Unknown]
  - Urinary tract infection [Not Recovered/Not Resolved]
  - Psychotic disorder [Unknown]
  - Antipsychotic drug level increased [Not Recovered/Not Resolved]
  - Confusional state [Unknown]
  - Schizophrenia [Unknown]
  - Myoclonus [Unknown]
  - White blood cell count increased [Recovered/Resolved]
  - Neutrophil count increased [Recovered/Resolved]
  - Platelet count increased [Recovered/Resolved]
